FAERS Safety Report 8025568 (Version 3)
Quarter: 2014Q1

REPORT INFORMATION
  Report Type: Report from Study
  Country: US (occurrence: US)
  Receive Date: 20110707
  Receipt Date: 20140325
  Transmission Date: 20141002
  Serious: Yes (Hospitalization, Other)
  Sender: FDA-Public Use
  Company Number: US-ALEXION-A201100684

PATIENT
  Age: 16 Year
  Sex: Female
  Weight: 68 kg

DRUGS (2)
  1. SOLIRIS [Suspect]
     Indication: PAROXYSMAL NOCTURNAL HAEMOGLOBINURIA
     Dosage: 900 MG, Q2W
     Route: 042
     Dates: start: 20100618, end: 20110617
  2. SOLIRIS [Suspect]
     Indication: OFF LABEL USE

REACTIONS (3)
  - Parvovirus infection [Recovered/Resolved]
  - Bone marrow transplant [Recovering/Resolving]
  - Anaemia [Recovered/Resolved]
